FAERS Safety Report 5474735-6 (Version None)
Quarter: 2007Q3

REPORT INFORMATION
  Report Type: 
  Country: None (occurrence: None)
  Receive Date: 20070927
  Receipt Date: 20070927
  Transmission Date: 20080115
  Serious: Yes (Life-Threatening, Hospitalization)
  Sender: FDA-Public Use
  Company Number: None

PATIENT
  Age: 52 Year
  Sex: Female
  Weight: 145.6046 kg

DRUGS (18)
  1. SIMVASTATIN [Suspect]
     Indication: DYSLIPIDAEMIA
     Dosage: 60 MG NIGHTLY PO
     Route: 048
     Dates: start: 20060531, end: 20070829
  2. NEORAL [Suspect]
     Indication: PROPHYLAXIS AGAINST TRANSPLANT REJECTION
     Dosage: 250 MG; 275 MG MORNING;EVENING PO
     Route: 048
     Dates: start: 20051224, end: 20070829
  3. MYCOPHENOLATE MOFETIL [Concomitant]
  4. POTASSIUM CHLORIDE [Concomitant]
  5. IRON [Concomitant]
  6. EPOETIN ALFA [Concomitant]
  7. MAGNESIUM SULFATE [Concomitant]
  8. CALCIUM + VITAMIN D [Concomitant]
  9. LANSOPRAZOLE [Concomitant]
  10. ALENDRONATE SODIUM [Concomitant]
  11. LISINOPRIL [Concomitant]
  12. FUROSEMIDE [Concomitant]
  13. ASPIRIN [Concomitant]
  14. EZETIMIBE [Concomitant]
  15. BUPROPION HCL [Concomitant]
  16. TOPIRAMATE [Concomitant]
  17. METOPROLOL SUCCINATE EXTENDED RELEASE [Concomitant]
  18. ACYCLOVIR [Concomitant]

REACTIONS (3)
  - HYPERKALAEMIA [None]
  - HYPERLIPIDAEMIA [None]
  - RHABDOMYOLYSIS [None]
